FAERS Safety Report 5627088-4 (Version None)
Quarter: 2008Q1

REPORT INFORMATION
  Report Type: 
  Country: None (occurrence: None)
  Receive Date: 20080124
  Receipt Date: 20070424
  Transmission Date: 20080703
  Serious: Yes (Hospitalization)
  Sender: FDA-Public Use
  Company Number: PHEH2007US05687

PATIENT
  Age: 78 Year
  Sex: Male

DRUGS (1)
  1. SANDOSTATIN LAR [Suspect]
     Indication: CARCINOID SYNDROME
     Dosage: QMO, INJECTION NOS
     Dates: start: 20060701

REACTIONS (3)
  - ANORECTAL DISCOMFORT [None]
  - CARCINOID TUMOUR [None]
  - SURGERY [None]
